FAERS Safety Report 23615964 (Version 1)
Quarter: 2024Q1

REPORT INFORMATION
  Report Type: Spontaneous
  Country: ES (occurrence: ES)
  Receive Date: 20240311
  Receipt Date: 20240311
  Transmission Date: 20240409
  Serious: Yes (Other)
  Sender: FDA-Public Use
  Company Number: ES-GILEAD-2024-0663745

PATIENT
  Age: 50 Year
  Sex: Male

DRUGS (2)
  1. BIKTARVY [Suspect]
     Active Substance: BICTEGRAVIR SODIUM\EMTRICITABINE\TENOFOVIR ALAFENAMIDE FUMARATE
     Indication: HIV infection
     Dosage: UNK
     Route: 065
  2. DORAVIRINE [Concomitant]
     Active Substance: DORAVIRINE

REACTIONS (4)
  - Mycobacterium kansasii infection [Unknown]
  - CD4 lymphocytes decreased [Recovering/Resolving]
  - Weight increased [Unknown]
  - Off label use [Unknown]
